FAERS Safety Report 5492385-2 (Version None)
Quarter: 2007Q4

REPORT INFORMATION
  Report Type: 
  Country: None (occurrence: None)
  Receive Date: 20071015
  Receipt Date: 20070814
  Transmission Date: 20080405
  Serious: No
  Sender: FDA-Public Use
  Company Number: 2007SP002853

PATIENT
  Age: 50 Year
  Sex: Female

DRUGS (4)
  1. LUNESTA [Suspect]
     Dosage: 6 MG;ORAL
     Route: 048
  2. PAXIL [Suspect]
     Dosage: QD;ORAL
     Route: 048
  3. VALCYTE [Suspect]
     Dosage: ORAL
     Route: 048
  4. XANAX [Concomitant]

REACTIONS (3)
  - COGNITIVE DISORDER [None]
  - DRUG INTERACTION [None]
  - MANIA [None]
